FAERS Safety Report 18659510 (Version 2)
Quarter: 2021Q1

REPORT INFORMATION
  Report Type: Spontaneous
  Country: US (occurrence: US)
  Receive Date: 20201223
  Receipt Date: 20210201
  Transmission Date: 20210419
  Serious: Yes (Life-Threatening, Other)
  Sender: FDA-Public Use
  Company Number: US-AMAG PHARMACEUTICALS, INC.-AMAG202004327

PATIENT
  Sex: Female

DRUGS (2)
  1. LOSARTAN POTASSIUM. [Concomitant]
     Active Substance: LOSARTAN POTASSIUM
     Indication: PRODUCT USED FOR UNKNOWN INDICATION
  2. FERAHEME [Suspect]
     Active Substance: FERUMOXYTOL NON-STOICHIOMETRIC MAGNETITE
     Indication: SCAN WITH CONTRAST
     Dosage: RATE OF DOSAGE WAS 30ML/MIN. APPROXIMATELY 270MG PLANNED DOSAGE THE PATIENT RECEIVED ONLY 90MG.
     Route: 042
     Dates: start: 20201214

REACTIONS (7)
  - Throat tightness [Recovered/Resolved]
  - Flushing [Recovered/Resolved]
  - Anaphylactic reaction [Recovered/Resolved]
  - Swelling face [Recovered/Resolved]
  - Chills [Recovered/Resolved]
  - Off label use [Unknown]
  - Dyspnoea [Recovered/Resolved]

NARRATIVE: CASE EVENT DATE: 20201214
